FAERS Safety Report 18431031 (Version 1)
Quarter: 2020Q4

REPORT INFORMATION
  Report Type: Spontaneous
  Country: US (occurrence: US)
  Receive Date: 20201027
  Receipt Date: 20201027
  Transmission Date: 20210114
  Serious: No
  Sender: FDA-Public Use
  Company Number: None

PATIENT
  Age: 60 Year
  Sex: Male
  Weight: 91.17 kg

DRUGS (1)
  1. IBUPROFEN (IBUPROFEN 200MG TAB) [Suspect]
     Active Substance: IBUPROFEN
     Indication: PAIN
     Dates: start: 20131105, end: 20200114

REACTIONS (3)
  - Blood urea increased [None]
  - Chronic kidney disease [None]
  - Blood creatinine increased [None]

NARRATIVE: CASE EVENT DATE: 20200111
